FAERS Safety Report 20637445 (Version 1)
Quarter: 2022Q1

REPORT INFORMATION
  Report Type: Spontaneous
  Country: US (occurrence: None)
  Receive Date: 20220325
  Receipt Date: 20220325
  Transmission Date: 20220424
  Serious: Yes (Hospitalization)
  Sender: FDA-Public Use
  Company Number: US-FRESENIUS KABI-FK202203436

PATIENT
  Age: 60 Year
  Sex: Female
  Weight: 47.6 kg

DRUGS (8)
  1. FLUDARABINE [Suspect]
     Active Substance: FLUDARABINE PHOSPHATE
     Indication: Chronic lymphocytic leukaemia
     Route: 042
     Dates: start: 20200305, end: 20200307
  2. CYCLOPHOSPHAMIDE [Suspect]
     Active Substance: CYCLOPHOSPHAMIDE
     Indication: Chronic lymphocytic leukaemia
     Route: 042
     Dates: start: 20200305, end: 20200307
  3. LISOCABTAGENE MARALEUCEL [Suspect]
     Active Substance: LISOCABTAGENE MARALEUCEL
     Indication: Chronic lymphocytic leukaemia
     Dosage: 100 X 10^6 CAR +T CELLS, SINGLE,?LISOCABTAGENE MARALEUCEL
     Route: 042
     Dates: start: 20200310, end: 20200310
  4. ACYCLOVIR [Concomitant]
     Active Substance: ACYCLOVIR
     Indication: Infection prophylaxis
     Route: 048
     Dates: start: 20200325, end: 20201210
  5. ALENDRONATE SODIUM [Concomitant]
     Active Substance: ALENDRONATE SODIUM
     Indication: Osteoporosis
     Route: 048
     Dates: start: 20200922, end: 20210311
  6. DAPSONE [Concomitant]
     Active Substance: DAPSONE
     Indication: Infection prophylaxis
     Route: 048
     Dates: start: 20200308, end: 20201210
  7. LETERMOVIR [Concomitant]
     Active Substance: LETERMOVIR
     Indication: Infection prophylaxis
     Route: 048
     Dates: start: 20200325, end: 20201210
  8. OMEPRAZOLE [Concomitant]
     Active Substance: OMEPRAZOLE
     Indication: Gastritis prophylaxis
     Route: 048
     Dates: start: 20200213, end: 20211205

REACTIONS (1)
  - Gastroenteritis Escherichia coli [Recovered/Resolved]

NARRATIVE: CASE EVENT DATE: 20201024
